FAERS Safety Report 6598104-0 (Version None)
Quarter: 2010Q1

REPORT INFORMATION
  Report Type: 
  Country: None (occurrence: None)
  Receive Date: 20100224
  Receipt Date: 20050628
  Transmission Date: 20100710
  Serious: Yes (Disabling)
  Sender: FDA-Public Use
  Company Number: US-ALLERGAN-200502594

PATIENT
  Age: 55 Year
  Sex: Female
  Weight: 67.273 kg

DRUGS (6)
  1. BOTOX [Suspect]
     Indication: TREMOR
     Dosage: 190UNITS, PRN
     Route: 030
     Dates: start: 20030401, end: 20041001
  2. METOPROLOL TARTRATE [Concomitant]
     Indication: MENOPAUSE
  3. FLUOXETINE [Concomitant]
     Indication: HYPERTENSION
  4. HYDROCHLOROTHIAZIDE [Concomitant]
     Indication: OEDEMA PERIPHERAL
  5. POTASSIUM [Concomitant]
     Indication: MEDICAL DIET
  6. METRONIDAZOLE [Concomitant]
     Indication: DIVERTICULITIS

REACTIONS (2)
  - DEAFNESS [None]
  - MUSCULOSKELETAL STIFFNESS [None]
